FAERS Safety Report 5120211-X (Version None)
Quarter: 2006Q4

REPORT INFORMATION
  Report Type: 
  Country: None (occurrence: None)
  Receive Date: 20061004
  Receipt Date: 20060922
  Transmission Date: 20070319
  Serious: Yes (Hospitalization)
  Sender: FDA-Public Use
  Company Number: PHBS2006NZ14540

PATIENT
  Age: 19 Year
  Sex: Male

DRUGS (4)
  1. CLOZARIL [Suspect]
     Indication: INCORRECT DOSE ADMINISTERED
     Dosage: 200 MG/DAY
     Route: 048
  2. CLOZARIL [Suspect]
     Dosage: 1400 MG, ONCE/SINGLE
     Route: 048
  3. CITALOPRAM HYDROBROMIDE [Suspect]
  4. LORAZEPAM [Suspect]

REACTIONS (5)
  - GLASGOW COMA SCALE ABNORMAL [None]
  - INTENTIONAL OVERDOSE [None]
  - LIFE SUPPORT [None]
  - SEDATION [None]
  - TACHYCARDIA [None]
